FAERS Safety Report 7995992-8 (Version None)
Quarter: 2011Q4

REPORT INFORMATION
  Report Type: 
  Country: None (occurrence: None)
  Receive Date: 20111220
  Receipt Date: 20111208
  Transmission Date: 20120403
  Serious: Yes (Life-Threatening, Hospitalization, Other)
  Sender: FDA-Public Use
  Company Number: PHEH2011US011259

PATIENT
  Sex: Female

DRUGS (9)
  1. ACETAMINOPHEN [Concomitant]
  2. NAPROXEN [Concomitant]
  3. TEKTURNA HCT [Suspect]
     Dosage: 1 DF, QD (300 MG/UNKNOWN DOSE OF HCT)
  4. FLEXERIL [Concomitant]
  5. GABAPENTIN [Concomitant]
     Dosage: 600 MG, UNK
  6. LORAZEPAM [Concomitant]
     Dosage: 1 MG, UNK
  7. KEPPRA [Concomitant]
  8. AMOXICILINA [Concomitant]
     Dosage: 500 MG, UNK
  9. PREDNISONE TAB [Concomitant]
     Dosage: 10 MG, PRN

REACTIONS (9)
  - MALAISE [None]
  - DRUG EFFECT DECREASED [None]
  - FEELING ABNORMAL [None]
  - HEADACHE [None]
  - BLOOD PRESSURE INCREASED [None]
  - MEMORY IMPAIRMENT [None]
  - PAIN [None]
  - TACHYCARDIA [None]
  - BLOOD PRESSURE DECREASED [None]
